FAERS Safety Report 17511642 (Version 2)
Quarter: 2020Q1

REPORT INFORMATION
  Report Type: Spontaneous
  Country: DE (occurrence: DE)
  Receive Date: 20200306
  Receipt Date: 20200330
  Transmission Date: 20200409
  Serious: Yes (Hospitalization, Other)
  Sender: FDA-Public Use
  Company Number: NVSC2020DE063930

PATIENT
  Sex: Female

DRUGS (1)
  1. EXTAVIA [Suspect]
     Active Substance: INTERFERON BETA-1B
     Indication: MULTIPLE SCLEROSIS
     Dosage: UNK,EVERY SECOND DAY
     Route: 065
     Dates: start: 201311

REACTIONS (9)
  - Lymphangitis [Unknown]
  - Animal bite [Unknown]
  - Erythema [Recovered/Resolved]
  - Tachycardia [Recovered/Resolved]
  - Pyrexia [Unknown]
  - Influenza like illness [Unknown]
  - Cellulitis [Unknown]
  - Poisoning [Recovered/Resolved]
  - White blood cell count increased [Recovered/Resolved]

NARRATIVE: CASE EVENT DATE: 2013
